FAERS Safety Report 19479277 (Version 1)
Quarter: 2021Q2

REPORT INFORMATION
  Report Type: Spontaneous
  Country: CN (occurrence: CN)
  Receive Date: 20210630
  Receipt Date: 20210630
  Transmission Date: 20210717
  Serious: Yes (Hospitalization)
  Sender: FDA-Public Use
  Company Number: NVSC2021CN143588

PATIENT
  Age: 26 Year
  Sex: Male
  Weight: 59 kg

DRUGS (2)
  1. TEGRETOL [Suspect]
     Active Substance: CARBAMAZEPINE
     Dosage: UNK
     Route: 065
     Dates: start: 20210619
  2. TEGRETOL [Suspect]
     Active Substance: CARBAMAZEPINE
     Indication: TINNITUS
     Dosage: 1 DF, QD
     Route: 048
     Dates: start: 20210609, end: 20210617

REACTIONS (4)
  - Pyrexia [Unknown]
  - Liver injury [Unknown]
  - Stevens-Johnson syndrome [Unknown]
  - Erythema multiforme [Unknown]

NARRATIVE: CASE EVENT DATE: 20210616
